FAERS Safety Report 22597046 (Version 1)
Quarter: 2023Q2

REPORT INFORMATION
  Report Type: Spontaneous
  Country: PR (occurrence: PR)
  Receive Date: 20230613
  Receipt Date: 20230613
  Transmission Date: 20230722
  Serious: Yes (Death, Other)
  Sender: FDA-Public Use
  Company Number: PR-BRISTOL-MYERS SQUIBB COMPANY-2023-082353

PATIENT
  Age: 83 Year
  Sex: Female
  Weight: 81.65 kg

DRUGS (1)
  1. REVLIMID [Suspect]
     Active Substance: LENALIDOMIDE
     Indication: Follicular lymphoma
     Dosage: TAKE ONE CAPSULE DAILY FOR 21 DAYS
     Route: 048
     Dates: start: 20220322

REACTIONS (1)
  - Death [Fatal]

NARRATIVE: CASE EVENT DATE: 20230509
